FAERS Safety Report 16009640 (Version 1)
Quarter: 2019Q1

REPORT INFORMATION
  Report Type: Spontaneous
  Country: US (occurrence: US)
  Receive Date: 20190226
  Receipt Date: 20190226
  Transmission Date: 20190418
  Serious: No
  Sender: FDA-Public Use
  Company Number: US-AUROBINDO-AUR-APL-2019-000522

PATIENT

DRUGS (1)
  1. VALSARTAN TABLETS USP 160MG [Suspect]
     Active Substance: VALSARTAN
     Indication: PRODUCT USED FOR UNKNOWN INDICATION
     Dosage: UNK
     Route: 065
     Dates: start: 201805

REACTIONS (5)
  - Poor quality sleep [Recovering/Resolving]
  - Weight decreased [Recovering/Resolving]
  - Product dose omission [Unknown]
  - Night sweats [Recovering/Resolving]
  - Malaise [Recovered/Resolved]
